FAERS Safety Report 20630315 (Version 1)
Quarter: 2022Q1

REPORT INFORMATION
  Report Type: Spontaneous
  Country: CA (occurrence: CA)
  Receive Date: 20220324
  Receipt Date: 20220324
  Transmission Date: 20220423
  Serious: Yes (Other)
  Sender: FDA-Public Use
  Company Number: CA-JNJFOC-20220340295

PATIENT
  Age: 73 Year
  Sex: Male
  Weight: 61 kg

DRUGS (8)
  1. REMICADE [Suspect]
     Active Substance: INFLIXIMAB
     Indication: Colitis ulcerative
     Route: 042
  2. CYANOCOBALAMIN [Concomitant]
     Active Substance: CYANOCOBALAMIN
     Route: 051
  3. FOLIC ACID [Concomitant]
     Active Substance: FOLIC ACID
     Route: 048
  4. METHOTREXATE [Concomitant]
     Active Substance: METHOTREXATE
     Route: 048
  5. PREDNISONE [Concomitant]
     Active Substance: PREDNISONE
  6. SILDENAFIL [Concomitant]
     Active Substance: SILDENAFIL
     Route: 048
  7. TADALAFIL [Concomitant]
     Active Substance: TADALAFIL
     Route: 048
  8. TESTOSTERONE [Concomitant]
     Active Substance: TESTOSTERONE
     Route: 048

REACTIONS (17)
  - Weight decreased [Unknown]
  - Soft tissue injury [Unknown]
  - Back injury [Unknown]
  - Decreased appetite [Unknown]
  - Defaecation urgency [Unknown]
  - Impaired quality of life [Unknown]
  - Joint injury [Unknown]
  - Limb injury [Unknown]
  - Neck injury [Unknown]
  - Road traffic accident [Unknown]
  - Injection site pain [Unknown]
  - Pulmonary fibrosis [Unknown]
  - Diarrhoea [Unknown]
  - Blood pressure increased [Unknown]
  - Blood pressure fluctuation [Unknown]
  - Intentional product use issue [Unknown]
  - Off label use [Unknown]
